FAERS Safety Report 8394159-1 (Version None)
Quarter: 2012Q2

REPORT INFORMATION
  Report Type: 
  Country: None (occurrence: None)
  Receive Date: 20120530
  Receipt Date: 20120525
  Transmission Date: 20120825
  Serious: Yes (Death)
  Sender: FDA-Public Use
  Company Number: US-US-EMD SERONO, INC.-7135910

PATIENT
  Sex: Male

DRUGS (3)
  1. REBIF [Suspect]
     Dates: start: 20120521, end: 20120523
  2. REBIF [Suspect]
     Indication: MULTIPLE SCLEROSIS
     Route: 058
     Dates: start: 20120509, end: 20120521
  3. PAXIL [Concomitant]
     Indication: DEPRESSION

REACTIONS (1)
  - COMPLETED SUICIDE [None]
